FAERS Safety Report 22203336 (Version 1)
Quarter: 2023Q2

REPORT INFORMATION
  Report Type: Spontaneous
  Country: DE (occurrence: DE)
  Receive Date: 20230412
  Receipt Date: 20230412
  Transmission Date: 20230722
  Serious: Yes (Hospitalization, Disabling, Congenital Anomaly, Other)
  Sender: FDA-Public Use
  Company Number: DE-EMBRYOTOX-202118317

PATIENT
  Sex: Male

DRUGS (9)
  1. OXYBUTYNIN [Suspect]
     Active Substance: OXYBUTYNIN
     Indication: Exposure during pregnancy
     Dosage: 39 MILLIGRAM DAILY; 39 [MG/D ]/ DAILY 3X13 MG 3 SEPARATED DOSES, 0. - 37.2. GESTATIONAL WEEK
     Route: 064
     Dates: start: 20210914, end: 20220602
  2. AMANTADINE HYDROCHLORIDE [Suspect]
     Active Substance: AMANTADINE HYDROCHLORIDE
     Indication: Exposure during pregnancy
     Dosage: 150 [MG/D ]/ INITALLY 150 MG/D, GW 7 REDUCED TO 100 MG/D, 0. - 7.1. GESTATIONAL WEEK OFF-LABEL USE I
     Route: 064
     Dates: start: 20210914, end: 20211103
  3. NATALIZUMAB [Suspect]
     Active Substance: NATALIZUMAB
     Indication: Exposure during pregnancy
     Dosage: 300 [MG/4WK ], 0. - 7.1, 0. - 33.2. GESTATIONAL WEEK
     Route: 064
     Dates: start: 20210914, end: 20220505
  4. ARIXTRA [Concomitant]
     Active Substance: FONDAPARINUX SODIUM
     Indication: Exposure during pregnancy
     Dosage: 2.5 [MG/D ]/ FRAGMIN SINCE GW 10, AFTER SOME WEEKS CHANGE TO ARIXTRA, UNKNOWN WHEN, TRIMESTER: 2ND +
  5. DALTEPARIN SODIUM [Concomitant]
     Active Substance: DALTEPARIN SODIUM
     Indication: Exposure during pregnancy
     Dosage: 2500 [IE/D ]/ START GW 10, AFTER SOME WEEKS CHANGE TO ARIXTRA, UNKNOWN WHEN, TRIMESTER: 1ST
  6. ACETAMINOPHEN [Concomitant]
     Active Substance: ACETAMINOPHEN
     Indication: Exposure during pregnancy
     Dosage: 500 MG/D [BEI BEDARF ]/ 500 MG, AS NEEDED, RARELY USED, 0. - 37.2. GESTATIONAL WEEK
     Dates: start: 20210914, end: 20220602
  7. COMIRNATY [Concomitant]
     Active Substance: TOZINAMERAN
     Indication: Exposure during pregnancy
     Dosage: SECOND VACCINATION, DATE UNKNOWN, TRIMESTER: UNKNOWN TRIMESTER
  8. COMIRNATY [Concomitant]
     Active Substance: TOZINAMERAN
     Dosage: FIRST VACCINATION
     Dates: start: 20211006, end: 20211006
  9. FOSFOMYCIN [Concomitant]
     Active Substance: FOSFOMYCIN
     Indication: Exposure during pregnancy
     Dosage: 3000 [MG/D ]/ SINGLE DOSE, 14. - 14. GESTATIONAL WEEK
     Dates: start: 20211221, end: 20211221

REACTIONS (10)
  - Patent ductus arteriosus [Unknown]
  - Selective eating disorder [Unknown]
  - Hypoglycaemia neonatal [Unknown]
  - Small for dates baby [Recovered/Resolved]
  - Hypopituitarism [Not Recovered/Not Resolved]
  - Atrial septal defect [Unknown]
  - Temperature regulation disorder [Unknown]
  - Brain malformation [Unknown]
  - Congenital central nervous system anomaly [Unknown]
  - Pregnancy [Unknown]

NARRATIVE: CASE EVENT DATE: 20210914
